FAERS Safety Report 8322439-4 (Version None)
Quarter: 2012Q2

REPORT INFORMATION
  Report Type: 
  Country: None (occurrence: None)
  Receive Date: 20120430
  Receipt Date: 20120422
  Transmission Date: 20120825
  Serious: Yes (Disabling, Other)
  Sender: FDA-Public Use
  Company Number: US-BAYER-2012-039310

PATIENT
  Sex: Female

DRUGS (2)
  1. MIRENA [Suspect]
     Dosage: 20 MCG/24HR, CONT
     Route: 015
     Dates: start: 20111201, end: 20120401
  2. BENADRYL [Concomitant]
     Indication: MOTION SICKNESS

REACTIONS (3)
  - MOTION SICKNESS [None]
  - NAUSEA [None]
  - ANXIETY [None]
